FAERS Safety Report 24763958 (Version 1)
Quarter: 2024Q4

REPORT INFORMATION
  Report Type: Spontaneous
  Country: JP (occurrence: JP)
  Receive Date: 20241223
  Receipt Date: 20241223
  Transmission Date: 20250115
  Serious: Yes (Hospitalization, Other)
  Sender: ASTELLAS
  Company Number: JP-ASTELLAS-2024-AER-025997

PATIENT
  Age: 7 Decade
  Sex: Male

DRUGS (3)
  1. PROGRAF [Suspect]
     Active Substance: TACROLIMUS
     Indication: Interstitial lung disease
     Route: 065
     Dates: start: 202411
  2. PROGRAF [Suspect]
     Active Substance: TACROLIMUS
     Indication: Polymyositis
  3. PROGRAF [Suspect]
     Active Substance: TACROLIMUS
     Indication: Dermatomyositis

REACTIONS (3)
  - Condition aggravated [Unknown]
  - Renal impairment [Unknown]
  - Drug level fluctuating [Unknown]
